FAERS Safety Report 7574987-2 (Version None)
Quarter: 2011Q2

REPORT INFORMATION
  Report Type: 
  Country: None (occurrence: None)
  Receive Date: 20110627
  Receipt Date: 20110623
  Transmission Date: 20111010
  Serious: Yes (Other)
  Sender: FDA-Public Use
  Company Number: ZA-PFIZER INC-2011138022

PATIENT
  Age: 59 Year
  Sex: Female

DRUGS (8)
  1. PERINDOPRIL [Concomitant]
     Dosage: UNK
  2. VARENICLINE TARTRATE [Suspect]
     Dosage: 1 MG, 2X/DAY
     Route: 048
     Dates: start: 20110620
  3. AZOR [Concomitant]
     Dosage: UNK
  4. VARENICLINE TARTRATE [Suspect]
     Dosage: UNK
     Route: 048
     Dates: start: 20110526
  5. COXFLAM [Concomitant]
     Dosage: UNK
  6. TRAMADOL HYDROCHLORIDE AND ACETAMINOPHEN [Concomitant]
     Dosage: UNK
  7. SERTRALINE [Concomitant]
     Dosage: UNK
     Route: 048
  8. EVOREL [Concomitant]
     Dosage: UNK

REACTIONS (3)
  - DYSGEUSIA [None]
  - MENTAL STATUS CHANGES [None]
  - MEMORY IMPAIRMENT [None]
